FAERS Safety Report 5285838-3 (Version None)
Quarter: 2007Q1

REPORT INFORMATION
  Report Type: 
  Country: None (occurrence: None)
  Receive Date: 20070104
  Receipt Date: 20061031
  Transmission Date: 20070707
  Serious: No
  Sender: FDA-Public Use
  Company Number: BDI-008814

PATIENT
  Age: 7 Year
  Sex: Male

DRUGS (2)
  1. MULTIHANCE [Suspect]
     Indication: LYMPHOMA
     Dosage: 15 ML ONCE IV
     Route: 042
     Dates: start: 20061024, end: 20061024
  2. MULTIHANCE [Suspect]
     Indication: NUCLEAR MAGNETIC RESONANCE IMAGING BRAIN
     Dosage: 15 ML ONCE IV
     Route: 042
     Dates: start: 20061024, end: 20061024

REACTIONS (3)
  - HYPERHIDROSIS [None]
  - INJECTION SITE PAIN [None]
  - NAUSEA [None]
